FAERS Safety Report 7178153-4 (Version None)
Quarter: 2010Q4

REPORT INFORMATION
  Report Type: 
  Country: None (occurrence: None)
  Receive Date: 20101220
  Receipt Date: 20101213
  Transmission Date: 20110411
  Serious: Yes (Death, Life-Threatening)
  Sender: FDA-Public Use
  Company Number: B0689463A

PATIENT
  Sex: Male
  Weight: 70 kg

DRUGS (41)
  1. ALKERAN [Suspect]
     Indication: STEM CELL TRANSPLANT
     Dosage: 70MGM2 PER DAY
     Route: 042
     Dates: start: 20020413, end: 20020413
  2. FLUDARABINE PHOSPHATE [Concomitant]
     Indication: STEM CELL TRANSPLANT
     Dosage: 25MGM2 PER DAY
     Route: 042
     Dates: start: 20020406, end: 20020406
  3. NEU-UP [Concomitant]
     Dates: start: 20020421, end: 20020506
  4. NEU-UP [Concomitant]
     Dates: start: 20020627, end: 20020704
  5. NEU-UP [Concomitant]
     Dates: start: 20020718, end: 20020816
  6. COLONY STIMULATING FACTOR [Concomitant]
     Dates: start: 20020629, end: 20020703
  7. TACROLIMUS [Concomitant]
     Indication: IMMUNOSUPPRESSION
     Dosage: 2.1MG PER DAY
     Route: 065
     Dates: start: 20020415
  8. CELLCEPT [Concomitant]
     Indication: IMMUNOSUPPRESSION
     Dosage: 1000MG PER DAY
     Route: 048
     Dates: start: 20020423
  9. METHOTREXATE [Concomitant]
     Indication: IMMUNOSUPPRESSION
     Dosage: 15MG PER DAY
     Route: 048
     Dates: start: 20020417, end: 20020417
  10. METHOTREXATE [Concomitant]
     Dosage: 10MG PER DAY
     Route: 048
     Dates: start: 20020419, end: 20020419
  11. NYSTATIN [Concomitant]
     Dosage: 3IU6 PER DAY
     Route: 048
     Dates: start: 20020815, end: 20020921
  12. BAKTAR [Concomitant]
     Dosage: 1G PER DAY
     Route: 048
     Dates: start: 20020921, end: 20021018
  13. DEPAKENE [Concomitant]
     Dosage: 800MG PER DAY
     Route: 048
     Dates: start: 20020602
  14. DEPAKENE [Concomitant]
     Dosage: 1200MG PER DAY
     Route: 048
     Dates: start: 20020916, end: 20021002
  15. VALPROIC ACID [Concomitant]
     Dosage: 2G PER DAY
     Route: 048
     Dates: start: 20021003, end: 20021018
  16. INTRALIPID 10% [Concomitant]
     Dosage: 500ML PER DAY
     Route: 042
     Dates: start: 20020530, end: 20021019
  17. PREDONINE [Concomitant]
     Dosage: 120MG PER DAY
     Dates: start: 20020802, end: 20021020
  18. FOSCAVIR [Concomitant]
     Dosage: 160ML PER DAY
     Route: 042
     Dates: start: 20020830, end: 20020912
  19. FOSCAVIR [Concomitant]
     Dosage: 80ML PER DAY
     Route: 042
     Dates: start: 20020913, end: 20021007
  20. FOSCAVIR [Concomitant]
     Dosage: 100ML PER DAY
     Route: 042
     Dates: start: 20021008, end: 20021016
  21. FOSCAVIR [Concomitant]
     Dosage: 100ML PER DAY
     Route: 042
     Dates: start: 20021021, end: 20021021
  22. MODACIN [Concomitant]
     Dosage: 2G PER DAY
     Route: 042
     Dates: start: 20020912, end: 20020920
  23. MODACIN [Concomitant]
     Dosage: 2G PER DAY
     Route: 042
     Dates: start: 20021018, end: 20021023
  24. AMIKACIN SULFATE [Concomitant]
     Dosage: 400MG PER DAY
     Dates: start: 20020912, end: 20021002
  25. AMIKACIN SULFATE [Concomitant]
     Dosage: 400MG PER DAY
     Dates: start: 20020921, end: 20021002
  26. MINOMYCIN [Concomitant]
     Dosage: 200MG PER DAY
     Route: 042
     Dates: start: 20020912, end: 20021002
  27. MEROPENEM [Concomitant]
     Dosage: 2G PER DAY
     Route: 042
     Dates: start: 20020921, end: 20021014
  28. DIFLUCAN [Concomitant]
     Dosage: 400MG PER DAY
     Route: 042
     Dates: start: 20020917, end: 20021002
  29. MORPHINE HYDROCHLORIDE [Concomitant]
     Dosage: 1.5ML PER DAY
     Dates: start: 20020915, end: 20021006
  30. MORPHINE HYDROCHLORIDE [Concomitant]
     Dosage: .5ML PER DAY
     Dates: start: 20021013, end: 20021018
  31. MORPHINE HYDROCHLORIDE [Concomitant]
     Dosage: 24ML PER DAY
     Dates: start: 20021020, end: 20021023
  32. FUNGIZONE [Concomitant]
     Dosage: 10MG PER DAY
     Dates: start: 20020920, end: 20021023
  33. CIPROFLOXACIN HCL [Concomitant]
     Dosage: 1300MG PER DAY
     Route: 042
     Dates: start: 20021003, end: 20021008
  34. CIPROFLOXACIN HCL [Concomitant]
     Dosage: 1300MG PER DAY
     Route: 042
     Dates: start: 20021011, end: 20021018
  35. DENOSINE (GANCYCLOVIR) [Concomitant]
     Dosage: 140MG PER DAY
     Dates: start: 20021016, end: 20021020
  36. TARGOCID [Concomitant]
     Dosage: 400MG PER DAY
     Route: 042
     Dates: start: 20021014, end: 20021014
  37. TARGOCID [Concomitant]
     Dosage: 200MG PER DAY
     Route: 042
     Dates: start: 20021015, end: 20021016
  38. DALACIN [Concomitant]
     Dosage: 1200MG PER DAY
     Dates: start: 20021018, end: 20021023
  39. INOVAN [Concomitant]
     Dosage: 160MG PER DAY
     Route: 042
     Dates: start: 20021020, end: 20021023
  40. KETALAR [Concomitant]
     Dates: start: 20021020, end: 20021023
  41. SOLU-MEDROL [Concomitant]
     Dosage: 50MG PER DAY
     Route: 042
     Dates: start: 20021021, end: 20021023

REACTIONS (1)
  - PNEUMONIA CYTOMEGALOVIRAL [None]
